FAERS Safety Report 7652280-7 (Version None)
Quarter: 2011Q3

REPORT INFORMATION
  Report Type: 
  Country: None (occurrence: None)
  Receive Date: 20110728
  Receipt Date: 20110718
  Transmission Date: 20111222
  Serious: No
  Sender: FDA-Public Use
  Company Number: TPA2011A03993

PATIENT
  Age: 72 Year
  Sex: Male
  Weight: 114.3065 kg

DRUGS (2)
  1. ACTOS [Suspect]
     Indication: DIABETES MELLITUS
     Dosage: 30 MG, 1 IN 1 D, PER ORAL 45 MG, 1 IN 1 D, PER ORAL
     Route: 048
     Dates: start: 20080424, end: 20110712
  2. ACTOS [Suspect]
     Indication: DIABETES MELLITUS
     Dosage: 30 MG, 1 IN 1 D, PER ORAL 45 MG, 1 IN 1 D, PER ORAL
     Route: 048
     Dates: start: 20070413, end: 20080424

REACTIONS (2)
  - BLADDER CANCER [None]
  - TRANSITIONAL CELL CARCINOMA [None]
